FAERS Safety Report 13759402 (Version 4)
Quarter: 2020Q3

REPORT INFORMATION
  Report Type: Spontaneous
  Country: US (occurrence: US)
  Receive Date: 20170717
  Receipt Date: 20200916
  Transmission Date: 20201102
  Serious: No
  Sender: FDA-Public Use
  Company Number: US-PFIZER INC-2017307582

PATIENT
  Age: 71 Year
  Sex: Female

DRUGS (4)
  1. LYRICA [Suspect]
     Active Substance: PREGABALIN
     Indication: PAIN
  2. LYRICA [Suspect]
     Active Substance: PREGABALIN
     Indication: HYPOAESTHESIA
     Dosage: 150 MG, 3X/DAY
     Dates: start: 20170713, end: 20170718
  3. LYRICA [Suspect]
     Active Substance: PREGABALIN
     Indication: BURNING SENSATION
  4. LYRICA [Suspect]
     Active Substance: PREGABALIN
     Indication: NEURALGIA

REACTIONS (1)
  - Peripheral coldness [Recovered/Resolved]
